FAERS Safety Report 4844004-3 (Version None)
Quarter: 2005Q4

REPORT INFORMATION
  Report Type: 
  Country: None (occurrence: None)
  Receive Date: 20051202
  Receipt Date: 20050815
  Transmission Date: 20060501
  Serious: No
  Sender: FDA-Public Use
  Company Number: US-GLAXOSMITHKLINE-A0570259A

PATIENT
  Age: 42 Year
  Sex: Female
  Weight: 100 kg

DRUGS (3)
  1. AUGMENTIN XR [Suspect]
     Indication: OTITIS EXTERNA
     Dosage: 1000MG TWICE PER DAY
     Route: 048
     Dates: start: 20050815
  2. VERAPAMIL [Concomitant]
  3. PERCOCET [Concomitant]

REACTIONS (2)
  - BACK PAIN [None]
  - FLATULENCE [None]
